FAERS Safety Report 6096445-7 (Version None)
Quarter: 2009Q1

REPORT INFORMATION
  Report Type: 
  Country: None (occurrence: None)
  Receive Date: 20090227
  Receipt Date: 20081229
  Transmission Date: 20090719
  Serious: No
  Sender: FDA-Public Use
  Company Number: A0761679A

PATIENT
  Age: 16 Year
  Sex: Female

DRUGS (2)
  1. LAMICTAL [Suspect]
     Indication: BIPOLAR DISORDER
     Route: 048
  2. MIRCETTE [Suspect]
     Dosage: 1TAB CYCLIC
     Route: 048
     Dates: start: 20080901

REACTIONS (3)
  - BIPOLAR DISORDER [None]
  - DRUG INEFFECTIVE [None]
  - OVERDOSE [None]
